FAERS Safety Report 6592499 (Version 4)
Quarter: 2018Q4

REPORT INFORMATION
  Report Type: Spontaneous
  Country: JP (occurrence: JP)
  Receive Date: 20080325
  Receipt Date: 20181116
  Transmission Date: 20190205
  Serious: Yes (Death, Hospitalization)
  Sender: FDA-Public Use
  Company Number: PHHY2008JP01474

PATIENT
  Sex: Female

DRUGS (1)
  1. GLIVEC [Suspect]
     Active Substance: IMATINIB MESYLATE
     Indication: GASTROINTESTINAL STROMAL TUMOUR
     Dosage: 400 MG, QD
     Route: 048
     Dates: start: 20080201, end: 20080204

REACTIONS (4)
  - Nausea [Recovering/Resolving]
  - Disseminated intravascular coagulation [Fatal]
  - General physical health deterioration [Unknown]
  - Post procedural complication [Fatal]

NARRATIVE: CASE EVENT DATE: 20080202
